FAERS Safety Report 19801515 (Version 2)
Quarter: 2021Q3

REPORT INFORMATION
  Report Type: Report from Study
  Country: ES (occurrence: ES)
  Receive Date: 20210907
  Receipt Date: 20210927
  Transmission Date: 20211014
  Serious: Yes (Hospitalization)
  Sender: FDA-Public Use
  Company Number: ES-BAXTER-2021BAX027980

PATIENT
  Sex: Female

DRUGS (3)
  1. GENOXAL [Suspect]
     Active Substance: CYCLOPHOSPHAMIDE
     Indication: BREAST CANCER
     Route: 065
  2. PACLITAXEL. [Suspect]
     Active Substance: PACLITAXEL
     Indication: BREAST CANCER
     Route: 065
  3. CAELYX PEGYLATED LIPOSOMAL 2 MG/ML CONCENTRATE FOR SOLUTION FOR INFUSI [Suspect]
     Active Substance: DOXORUBICIN HYDROCHLORIDE
     Indication: BREAST CANCER
     Route: 065

REACTIONS (5)
  - Exposure during pregnancy [Unknown]
  - Nausea [Unknown]
  - Stress [Unknown]
  - Anaemia [Unknown]
  - Shortened cervix [Unknown]
